FAERS Safety Report 7368556-7 (Version None)
Quarter: 2011Q1

REPORT INFORMATION
  Report Type: 
  Country: None (occurrence: None)
  Receive Date: 20110323
  Receipt Date: 20110316
  Transmission Date: 20110831
  Serious: Yes (Hospitalization, Other)
  Sender: FDA-Public Use
  Company Number: FR-KINGPHARMUSA00001-K201100285

PATIENT
  Age: 67 Year
  Sex: Female

DRUGS (11)
  1. MOXONIDINE [Concomitant]
     Dosage: UNK
  2. NSAID'S [Concomitant]
     Dosage: UNK
     Dates: end: 20090101
  3. MIRTAZAPINE [Concomitant]
     Dosage: UNK
  4. ALISKIREN [Suspect]
     Indication: HYPERTENSION
     Dosage: 1 DF, QD
     Route: 048
     Dates: start: 20080101, end: 20100501
  5. OXYCODONE [Concomitant]
     Dosage: UNK
  6. OPIOIDS [Concomitant]
  7. ALTACE [Suspect]
     Indication: HYPERTENSION
     Dosage: 5 MG, QD
     Route: 048
     Dates: start: 20080101, end: 20100501
  8. INEGY [Concomitant]
     Dosage: UNK
  9. CONTRAST MEDIA [Suspect]
     Dosage: UNK
     Dates: start: 20090101, end: 20091201
  10. NALOXONE [Concomitant]
     Dosage: UNK
  11. CARVEDILOL [Concomitant]
     Dosage: UNK

REACTIONS (4)
  - BREAST CANCER FEMALE [None]
  - BREAST CANCER [None]
  - RENAL FAILURE [None]
  - BLOOD CREATININE INCREASED [None]
